FAERS Safety Report 21826062 (Version 1)
Quarter: 2023Q1

REPORT INFORMATION
  Report Type: Spontaneous
  Country: RO (occurrence: RO)
  Receive Date: 20230106
  Receipt Date: 20230106
  Transmission Date: 20230418
  Serious: Yes (Other)
  Sender: FDA-Public Use
  Company Number: None

PATIENT
  Age: 69 Year
  Sex: Male
  Weight: 109 kg

DRUGS (9)
  1. SIMPONI [Suspect]
     Active Substance: GOLIMUMAB
     Indication: Ankylosing spondylitis
     Dosage: 2 VIALS OF 50 MG/MONTH
     Route: 058
     Dates: start: 20160321, end: 20220920
  2. BISOPROLOL FUMARATE [Concomitant]
     Active Substance: BISOPROLOL FUMARATE
     Indication: Atrial fibrillation
     Dosage: 1 TABLET/DAY
     Route: 048
     Dates: start: 20150801
  3. ACENOCOUMAROL [Concomitant]
     Active Substance: ACENOCOUMAROL
     Indication: Atrial fibrillation
     Dosage: 1 TABLET/DAY
     Route: 048
     Dates: start: 20091001
  4. DIOSMIN\HESPERIDIN [Concomitant]
     Active Substance: DIOSMIN\HESPERIDIN
     Indication: Peripheral venous disease
     Dosage: 1 TABLET OF 1000 MG/DAY
     Route: 048
     Dates: start: 20171016
  5. OMEPRAZOLE [Concomitant]
     Active Substance: OMEPRAZOLE
     Indication: Dyspepsia
     Dosage: 1 CAPSULE/DAY
     Route: 048
     Dates: start: 20170103
  6. DIGOXIN SOPHARMA [Concomitant]
     Indication: Atrial fibrillation
     Dosage: 1 TABLET/DAY, PAUSE ON THURSDAYS AND SUNDAYS
     Route: 048
     Dates: start: 20171016
  7. DIAZEPAM TERAPIA [Concomitant]
     Indication: Insomnia
     Dosage: 1 TABLET OF 10 MG/DAY
     Route: 048
     Dates: start: 20170203
  8. TIMOLOL [Concomitant]
     Active Substance: TIMOLOL
     Indication: Ocular hypertension
     Dosage: 1 DROP/EYE X2/DAY
     Route: 031
     Dates: start: 20190305
  9. ZALDIAR [Concomitant]
     Active Substance: ACETAMINOPHEN\TRAMADOL HYDROCHLORIDE
     Indication: Ankylosing spondylitis
     Dosage: 1 TABLET/DAY IF NEEDED, 45 TABLETS/MONTH MAXIMUM
     Route: 048
     Dates: start: 20170206

REACTIONS (1)
  - Hepatitis B DNA increased [Recovering/Resolving]

NARRATIVE: CASE EVENT DATE: 20210722
